FAERS Safety Report 19466006 (Version 6)
Quarter: 2025Q3

REPORT INFORMATION
  Report Type: Report from Study
  Country: BR (occurrence: BR)
  Receive Date: 20210626
  Receipt Date: 20250708
  Transmission Date: 20251021
  Serious: Yes (Hospitalization)
  Sender: NOVARTIS
  Company Number: NVSC2021BR138514

PATIENT
  Age: 45 Year
  Sex: Female

DRUGS (6)
  1. COSENTYX [Suspect]
     Active Substance: SECUKINUMAB
     Indication: Psoriasis
     Route: 065
     Dates: start: 202009
  2. COSENTYX [Suspect]
     Active Substance: SECUKINUMAB
     Indication: Psoriatic arthropathy
     Route: 065
     Dates: start: 20210113
  3. COSENTYX [Suspect]
     Active Substance: SECUKINUMAB
     Route: 065
     Dates: start: 202012
  4. COSENTYX [Suspect]
     Active Substance: SECUKINUMAB
     Route: 065
     Dates: start: 202201
  5. IBUPROFEN [Concomitant]
     Active Substance: IBUPROFEN
     Indication: Product used for unknown indication
     Route: 065
  6. NAPROXEN [Concomitant]
     Active Substance: NAPROXEN
     Indication: Product used for unknown indication
     Route: 065

REACTIONS (14)
  - COVID-19 [Recovered/Resolved]
  - Fear [Unknown]
  - Psoriasis [Recovering/Resolving]
  - Skin lesion [Unknown]
  - Skin exfoliation [Not Recovered/Not Resolved]
  - Wound [Recovered/Resolved]
  - Pigmentation disorder [Not Recovered/Not Resolved]
  - Drug hypersensitivity [Unknown]
  - Suture related complication [Unknown]
  - Rebound effect [Unknown]
  - Wound [Recovering/Resolving]
  - Blister [Recovering/Resolving]
  - Eye swelling [Recovering/Resolving]
  - Eye disorder [Recovering/Resolving]

NARRATIVE: CASE EVENT DATE: 20201101
